FAERS Safety Report 9255314 (Version 1)
Quarter: 2013Q2

REPORT INFORMATION
  Report Type: Spontaneous
  Country: AU (occurrence: AU)
  Receive Date: 20130425
  Receipt Date: 20130425
  Transmission Date: 20140414
  Serious: Yes (Hospitalization, Other)
  Sender: FDA-Public Use
  Company Number: AU-ASTRAZENECA-2012SE01642

PATIENT
  Age: 74 Year
  Sex: Male

DRUGS (1)
  1. ZOLADEX [Suspect]
     Indication: PROSTATE CANCER
     Route: 058
     Dates: start: 20050901

REACTIONS (8)
  - Haemorrhage urinary tract [Not Recovered/Not Resolved]
  - Sepsis [Unknown]
  - Renal failure [Unknown]
  - Bone density decreased [Not Recovered/Not Resolved]
  - Somnolence [Not Recovered/Not Resolved]
  - Malaise [Unknown]
  - Asthenia [Not Recovered/Not Resolved]
  - Arthralgia [Not Recovered/Not Resolved]
